FAERS Safety Report 5274518-6 (Version None)
Quarter: 2007Q1

REPORT INFORMATION
  Report Type: 
  Country: None (occurrence: None)
  Receive Date: 20070320
  Receipt Date: 20070308
  Transmission Date: 20070707
  Serious: Yes (Other)
  Sender: FDA-Public Use
  Company Number: 012845

PATIENT
  Age: 63 Year
  Sex: Female

DRUGS (14)
  1. PRIALT [Suspect]
     Indication: COMPLEX REGIONAL PAIN SYNDROME
     Dosage: SEE IMAGE
     Route: 037
     Dates: start: 20060701, end: 20060901
  2. PRIALT [Suspect]
     Indication: COMPLEX REGIONAL PAIN SYNDROME
     Dosage: SEE IMAGE
     Route: 037
     Dates: start: 20060901
  3. PRIALT [Suspect]
     Indication: COMPLEX REGIONAL PAIN SYNDROME
     Dosage: SEE IMAGE
     Route: 037
     Dates: start: 20070122
  4. MORPHINE [Concomitant]
  5. VASOTEC [Concomitant]
  6. COREG [Concomitant]
  7. LASIX [Concomitant]
  8. LANOXIN [Concomitant]
  9. SYNTHROID [Concomitant]
  10. PAXIL [Concomitant]
  11. ALDACTONE [Concomitant]
  12. COMBIVENT /01033501/ (IPRATROPIUM BROMIDE, SALBUTAMOL) [Concomitant]
  13. SEREVENT [Concomitant]
  14. VICODIN [Concomitant]

REACTIONS (7)
  - BLOOD CREATINE PHOSPHOKINASE INCREASED [None]
  - BLOOD CREATINE PHOSPHOKINASE MM INCREASED [None]
  - CHEST PAIN [None]
  - DYSPNOEA [None]
  - DYSPNOEA EXERTIONAL [None]
  - ELECTROCARDIOGRAM CHANGE [None]
  - REFUSAL OF TREATMENT BY PATIENT [None]
